FAERS Safety Report 9234908 (Version 1)
Quarter: 2013Q2

REPORT INFORMATION
  Report Type: Spontaneous
  Country: US (occurrence: US)
  Receive Date: 20130416
  Receipt Date: 20130416
  Transmission Date: 20140414
  Serious: No
  Sender: FDA-Public Use
  Company Number: US-BANPHARM-20120228

PATIENT
  Age: 56 Year
  Sex: Female
  Weight: 59 kg

DRUGS (4)
  1. ALEVE LIQUID GELS 220 MG [Suspect]
     Dosage: 2 CAPSULES,
     Route: 048
     Dates: start: 20121002, end: 20121002
  2. SYNTHROID [Concomitant]
  3. LISINOPRIL [Concomitant]
  4. VITAMINS [Concomitant]

REACTIONS (1)
  - Pruritus generalised [Recovered/Resolved]
